FAERS Safety Report 10981972 (Version 2)
Quarter: 2015Q2

REPORT INFORMATION
  Report Type: Report from Study
  Country: AU (occurrence: AU)
  Receive Date: 20150403
  Receipt Date: 20150413
  Transmission Date: 20150821
  Serious: Yes (Hospitalization)
  Sender: FDA-Public Use
  Company Number: AU-ROCHE-1559840

PATIENT
  Sex: Female
  Weight: 83.6 kg

DRUGS (4)
  1. DOXORUBICIN [Suspect]
     Active Substance: DOXORUBICIN
     Indication: OVARIAN CANCER RECURRENT
     Dosage: ON 25/MAR/2015, RECEIVED LAST DOSE PRIOR TO EVENT
     Route: 042
     Dates: start: 20140925
  2. CARBOPLATIN. [Suspect]
     Active Substance: CARBOPLATIN
     Indication: OVARIAN CANCER RECURRENT
     Dosage: ON 25/MAR/2015, RECEIVED LAST DOSE PRIOR TO EVENT
     Route: 042
     Dates: start: 20140925
  3. SODIUM VALPROATE [Concomitant]
     Active Substance: VALPROATE SODIUM
     Route: 048
     Dates: start: 1977
  4. BEVACIZUMAB [Suspect]
     Active Substance: BEVACIZUMAB
     Indication: OVARIAN CANCER RECURRENT
     Dosage: ON 25/MAR/2015, RECEIVED LAST DOSE PRIOR TO EVENT
     Route: 042
     Dates: start: 20140925

REACTIONS (1)
  - Seizure [Recovered/Resolved]

NARRATIVE: CASE EVENT DATE: 20150330
